FAERS Safety Report 6216977-8 (Version None)
Quarter: 2009Q2

REPORT INFORMATION
  Report Type: 
  Country: None (occurrence: None)
  Receive Date: 20090604
  Receipt Date: 20090526
  Transmission Date: 20091009
  Serious: Yes (Disabling)
  Sender: FDA-Public Use
  Company Number: APP200800439

PATIENT
  Age: 48 Year
  Sex: Male

DRUGS (6)
  1. SENSORCAINE [Suspect]
     Indication: MUSCULOSKELETAL PAIN
     Dosage: CONTINUOUS VIA, PAIN PUMP
     Dates: start: 20060511
  2. BUPIVACAINE HYDROCHLORIDE AND EPINEPHRINE [Suspect]
     Indication: MUSCULOSKELETAL PAIN
     Dosage: CONTINUOUS VIA PAIN PUMP
     Dates: start: 20060511
  3. BREG PAIN PUMP [Suspect]
     Indication: MUSCULOSKELETAL PAIN
     Dates: start: 20060511
  4. ANCEF [Concomitant]
  5. ACIPHEX [Concomitant]
  6. HYDROCODONE (HYDROCODONE) [Concomitant]

REACTIONS (9)
  - ARTHRITIS INFECTIVE [None]
  - COMPRESSION FRACTURE [None]
  - IMPAIRED WORK ABILITY [None]
  - MUSCULOSKELETAL STIFFNESS [None]
  - NERVE COMPRESSION [None]
  - OSTEONECROSIS [None]
  - STAPHYLOCOCCAL INFECTION [None]
  - SYNOVITIS [None]
  - VIRAL INFECTION [None]
